FAERS Safety Report 9057579 (Version 2)
Quarter: 2013Q1

REPORT INFORMATION
  Report Type: Spontaneous
  Country: US (occurrence: US)
  Receive Date: 20130204
  Receipt Date: 20130314
  Transmission Date: 20140127
  Serious: No
  Sender: FDA-Public Use
  Company Number: US-PFIZER INC-2013040329

PATIENT
  Age: 57 Year
  Sex: Male
  Weight: 81.63 kg

DRUGS (7)
  1. LIPITOR [Suspect]
     Indication: BLOOD CHOLESTEROL ABNORMAL
     Dosage: 10 MG, DAILY (QHS)
     Route: 048
  2. LIPITOR [Suspect]
     Indication: HYPERLIPIDAEMIA
  3. LISINOPRIL [Concomitant]
     Indication: BLOOD PRESSURE ABNORMAL
     Dosage: 10 MG, UNK
  4. TYLENOL [Concomitant]
     Dosage: 500 MG, UNK
  5. ENTERIC COATED ASPIRIN [Concomitant]
     Dosage: 81 MG, UNK
  6. ZANTAC [Concomitant]
     Dosage: 150 MG, 2X/DAY
  7. AMBIEN [Concomitant]
     Dosage: 5 MG, 1X/DAY, AT BEDTIME

REACTIONS (4)
  - Dizziness [Recovered/Resolved]
  - Malaise [Recovered/Resolved]
  - Feeling abnormal [Recovered/Resolved]
  - Malaise [Recovered/Resolved]
